FAERS Safety Report 19228502 (Version 6)
Quarter: 2021Q3

REPORT INFORMATION
  Report Type: Report from Study
  Country: CA (occurrence: CA)
  Receive Date: 20210507
  Receipt Date: 20210702
  Transmission Date: 20211014
  Serious: Yes (Other)
  Sender: FDA-Public Use
  Company Number: NVSC2021CA097074

PATIENT
  Age: 75 Year
  Sex: Female

DRUGS (8)
  1. MAYZENT [Suspect]
     Active Substance: SIPONIMOD
     Indication: SECONDARY PROGRESSIVE MULTIPLE SCLEROSIS
     Dosage: 0.5 MG, QD (FOR TWO WEEKS)
     Route: 048
     Dates: start: 20210426
  2. MAYZENT [Suspect]
     Active Substance: SIPONIMOD
     Dosage: 0.75 MG, QD (FOR TWO WEEKS)
     Route: 048
  3. MAYZENT [Suspect]
     Active Substance: SIPONIMOD
     Dosage: 1.25 MG, QD (FOR TWO WEEKS)
     Route: 048
  4. MAYZENT [Suspect]
     Active Substance: SIPONIMOD
     Dosage: 2 MG, QD
     Route: 048
     Dates: end: 20210517
  5. MAYZENT [Suspect]
     Active Substance: SIPONIMOD
     Dosage: 1.75 MG, QD (FOR TWO WEEKS)
     Route: 048
  6. MAYZENT [Suspect]
     Active Substance: SIPONIMOD
     Dosage: 1 MG, QD (FOR TWO WEEKS)
     Route: 048
  7. MAYZENT [Suspect]
     Active Substance: SIPONIMOD
     Dosage: 1.5 MG, QD (FOR TWO WEEKS)
     Route: 048
  8. MAYZENT [Suspect]
     Active Substance: SIPONIMOD
     Dosage: UNK
     Route: 048
     Dates: start: 20210602, end: 20210615

REACTIONS (16)
  - Peripheral swelling [Unknown]
  - Blood pressure increased [Unknown]
  - Chest discomfort [Unknown]
  - Aphasia [Unknown]
  - Tremor [Unknown]
  - Lymphocyte count decreased [Unknown]
  - Thinking abnormal [Unknown]
  - Feeling abnormal [Unknown]
  - Fatigue [Unknown]
  - Pneumonia [Unknown]
  - Speech disorder [Unknown]
  - Dizziness [Unknown]
  - Memory impairment [Unknown]
  - Frustration tolerance decreased [Unknown]
  - Rash [Unknown]
  - Nervousness [Unknown]

NARRATIVE: CASE EVENT DATE: 20210428
